FAERS Safety Report 4833258-5 (Version None)
Quarter: 2005Q4

REPORT INFORMATION
  Report Type: 
  Country: None (occurrence: None)
  Receive Date: 20051117
  Receipt Date: 20051107
  Transmission Date: 20060501
  Serious: Yes (Hospitalization)
  Sender: FDA-Public Use
  Company Number: GBS051119043

PATIENT
  Age: 57 Year
  Sex: Female

DRUGS (8)
  1. YENTREVE            (DULOXETINE HYDROCHLORIDE) [Suspect]
     Indication: STRESS INCONTINENCE
     Dosage: 40 MG/2 DAY
     Dates: start: 20050601, end: 20051027
  2. BENDROFLUMETHIAZIDE [Concomitant]
  3. TRAZODONE [Concomitant]
  4. MONTELUKAST [Concomitant]
  5. SYMBICORT [Concomitant]
  6. SALBUTAMOL [Concomitant]
  7. CO-DYDRAMOL [Concomitant]
  8. OMEPRAZOLE [Concomitant]

REACTIONS (13)
  - ASTHENIA [None]
  - BLOOD ALKALINE PHOSPHATASE INCREASED [None]
  - BLOOD BILIRUBIN INCREASED [None]
  - BLOOD CALCIUM INCREASED [None]
  - BLOOD MAGNESIUM DECREASED [None]
  - BLOOD PHOSPHORUS DECREASED [None]
  - BLOOD POTASSIUM DECREASED [None]
  - CARBON DIOXIDE DECREASED [None]
  - DIZZINESS POSTURAL [None]
  - FALL [None]
  - GAMMA-GLUTAMYLTRANSFERASE INCREASED [None]
  - HAEMOGLOBIN DECREASED [None]
  - SYNCOPE [None]
